FAERS Safety Report 12955530 (Version 1)
Quarter: 2016Q4

REPORT INFORMATION
  Report Type: Spontaneous
  Country: US (occurrence: US)
  Receive Date: 20161118
  Receipt Date: 20161118
  Transmission Date: 20170207
  Serious: No
  Sender: FDA-Public Use
  Company Number: US-PERRIGO-16US020690

PATIENT
  Age: 67 Year
  Sex: Female
  Weight: 58.96 kg

DRUGS (5)
  1. RESTASIS [Concomitant]
     Active Substance: CYCLOSPORINE
     Indication: DRY EYE
     Dosage: UNK
     Route: 065
  2. SENNA SPP. [Concomitant]
     Indication: CONSTIPATION
     Dosage: UNK
     Route: 065
     Dates: start: 1999
  3. POLYETHYLENE GLYCOL 3350. [Suspect]
     Active Substance: POLYETHYLENE GLYCOL 3350
     Indication: CONSTIPATION
     Dosage: 17 G, QHS
     Route: 048
     Dates: start: 20091006
  4. CRESTOR [Concomitant]
     Active Substance: ROSUVASTATIN CALCIUM
     Indication: BLOOD CHOLESTEROL INCREASED
     Dosage: 10 MG, UNKNOWN
     Route: 048
     Dates: start: 2004
  5. POLYETHYLENE GLYCOL 3350. [Suspect]
     Active Substance: POLYETHYLENE GLYCOL 3350
     Indication: ACCIDENTAL EXPOSURE TO PRODUCT
     Dosage: 17 G, TWICE
     Route: 048
     Dates: start: 20161003, end: 20161003

REACTIONS (3)
  - Diarrhoea [Unknown]
  - Extra dose administered [Recovered/Resolved]
  - Incorrect drug administration duration [Unknown]

NARRATIVE: CASE EVENT DATE: 20091013
